FAERS Safety Report 7047158-6 (Version None)
Quarter: 2010Q4

REPORT INFORMATION
  Report Type: 
  Country: None (occurrence: None)
  Receive Date: 20101015
  Receipt Date: 20100930
  Transmission Date: 20110411
  Serious: Yes (Hospitalization)
  Sender: FDA-Public Use
  Company Number: JP-ELI_LILLY_AND_COMPANY-JP201009008044

PATIENT
  Age: 44 Year
  Sex: Female
  Weight: 51.7 kg

DRUGS (3)
  1. PEMETREXED [Suspect]
     Indication: LUNG ADENOCARCINOMA
     Route: 042
     Dates: start: 20100810, end: 20100927
  2. CISPLATIN [Concomitant]
     Indication: LUNG ADENOCARCINOMA
     Route: 042
     Dates: start: 20100810, end: 20100927
  3. PANVITAN [Concomitant]
     Indication: CHEMOTHERAPY
     Route: 065
     Dates: start: 20100721

REACTIONS (1)
  - SCHIZOPHRENIFORM DISORDER [None]
